FAERS Safety Report 14194570 (Version 2)
Quarter: 2017Q4

REPORT INFORMATION
  Report Type: Spontaneous
  Country: NO (occurrence: NO)
  Receive Date: 20171116
  Receipt Date: 20171206
  Transmission Date: 20180321
  Serious: Yes (Other)
  Sender: FDA-Public Use
  Company Number: NO-LUPIN PHARMACEUTICALS INC.-2017-06573

PATIENT
  Age: 72 Year
  Sex: Female

DRUGS (7)
  1. ASPIRIN. [Interacting]
     Active Substance: ASPIRIN
     Indication: TRANSIENT ISCHAEMIC ATTACK
     Dosage: 75 MG, QD
     Route: 065
  2. FENTANYL. [Interacting]
     Active Substance: FENTANYL
     Indication: ANALGESIC THERAPY
     Dosage: 100 MCG PER HR
     Route: 065
  3. ATORVASTATIN [Interacting]
     Active Substance: ATORVASTATIN
     Indication: BLOOD CHOLESTEROL INCREASED
     Dosage: 40 MG, QD
     Route: 065
  4. PREGABALIN. [Interacting]
     Active Substance: PREGABALIN
     Indication: BACK PAIN
     Dosage: 450 MG, QD
     Route: 065
  5. LANSOPRAZOLE. [Interacting]
     Active Substance: LANSOPRAZOLE
     Indication: DYSPEPSIA
     Dosage: 30 MG ? 2 (SIC) DAILY
     Route: 065
  6. PREGABALIN. [Interacting]
     Active Substance: PREGABALIN
     Indication: ARTHRALGIA
     Dosage: 75 MG, BID
     Route: 065
  7. DICLOFENAC [Suspect]
     Active Substance: DICLOFENAC
     Indication: PAIN
     Dosage: 50 MG, TID
     Route: 065

REACTIONS (6)
  - Renal impairment [Unknown]
  - Somnolence [Recovered/Resolved]
  - Myalgia [Unknown]
  - Head titubation [Unknown]
  - Drug interaction [Unknown]
  - Impaired gastric emptying [Unknown]
